FAERS Safety Report 4942829-7 (Version None)
Quarter: 2006Q1

REPORT INFORMATION
  Report Type: 
  Country: None (occurrence: None)
  Receive Date: 20060309
  Receipt Date: 20060222
  Transmission Date: 20060701
  Serious: Yes (Other)
  Sender: FDA-Public Use
  Company Number: MAG-2006-0000428

PATIENT
  Age: 40 Year
  Sex: Female

DRUGS (1)
  1. THEOPHYLLINE [Suspect]
     Dosage: 40 TBLET, SINGLE, ORAL
     Route: 048
     Dates: start: 20060221, end: 20060221

REACTIONS (5)
  - ARRHYTHMIA [None]
  - CONVULSION [None]
  - INTENTIONAL DRUG MISUSE [None]
  - INTENTIONAL OVERDOSE [None]
  - VOMITING [None]
